FAERS Safety Report 16188020 (Version 1)
Quarter: 2019Q2

REPORT INFORMATION
  Report Type: Spontaneous
  Country: US (occurrence: US)
  Receive Date: 20190412
  Receipt Date: 20190412
  Transmission Date: 20190711
  Serious: No
  Sender: FDA-Public Use
  Company Number: US-AMGEN-USASP2019055717

PATIENT
  Age: 83 Year
  Sex: Female
  Weight: 63.49 kg

DRUGS (1)
  1. PROCRIT [Suspect]
     Active Substance: ERYTHROPOIETIN
     Indication: MYELODYSPLASTIC SYNDROME
     Dosage: 60000 UNIT, QWK
     Route: 065
     Dates: start: 20181001

REACTIONS (5)
  - Product dose omission [Unknown]
  - Productive cough [Not Recovered/Not Resolved]
  - Upper-airway cough syndrome [Not Recovered/Not Resolved]
  - Off label use [Unknown]
  - Haemoglobin decreased [Not Recovered/Not Resolved]

NARRATIVE: CASE EVENT DATE: 201810
